FAERS Safety Report 9891730 (Version 3)
Quarter: 2014Q2

REPORT INFORMATION
  Report Type: Report from Study
  Country: IT (occurrence: IT)
  Receive Date: 20140212
  Receipt Date: 20140609
  Transmission Date: 20141212
  Serious: Yes (Hospitalization)
  Sender: FDA-Public Use
  Company Number: PHHY2014IT015838

PATIENT
  Age: 46 Year
  Sex: Female
  Weight: 66 kg

DRUGS (3)
  1. GILENYA [Suspect]
     Indication: MULTIPLE SCLEROSIS
     Dosage: 0.5 MG, DAILY
     Route: 048
     Dates: start: 20140204
  2. PREGABALIN [Concomitant]
     Indication: HEAD DEFORMITY
     Dosage: 400 MG, UNK
     Route: 048
     Dates: start: 2011
  3. DULOXETINE [Concomitant]
     Indication: HEAD DEFORMITY
     Dosage: 120 MG, UNK
     Route: 048
     Dates: start: 2011

REACTIONS (2)
  - Atrioventricular block second degree [Recovered/Resolved]
  - Bundle branch block right [Unknown]
